FAERS Safety Report 12821212 (Version 1)
Quarter: 2016Q4

REPORT INFORMATION
  Report Type: Report from Study
  Country: CA (occurrence: CA)
  Receive Date: 20161007
  Receipt Date: 20161007
  Transmission Date: 20170207
  Serious: Yes (Other)
  Sender: FDA-Public Use
  Company Number: CA-ROCHE-1839311

PATIENT
  Age: 77 Year
  Sex: Female
  Weight: 96 kg

DRUGS (26)
  1. PSYLLIUM [Suspect]
     Active Substance: PLANTAGO SEED
     Indication: PRODUCT USED FOR UNKNOWN INDICATION
     Route: 065
  2. BROMELAIN [Concomitant]
     Active Substance: BROMELAINS
  3. VITAMIN C [Concomitant]
     Active Substance: ASCORBIC ACID
  4. ACTEMRA [Suspect]
     Active Substance: TOCILIZUMAB
     Route: 042
     Dates: start: 20150408
  5. ACTEMRA [Suspect]
     Active Substance: TOCILIZUMAB
     Route: 042
     Dates: start: 20150506
  6. ATENOLOL. [Concomitant]
     Active Substance: ATENOLOL
  7. FOLIC ACID. [Concomitant]
     Active Substance: FOLIC ACID
  8. VITAMIN E [Concomitant]
     Active Substance: .ALPHA.-TOCOPHEROL
  9. CRESTOR [Concomitant]
     Active Substance: ROSUVASTATIN CALCIUM
  10. ACTEMRA [Suspect]
     Active Substance: TOCILIZUMAB
     Route: 042
     Dates: start: 20150311
  11. CRESTOR [Suspect]
     Active Substance: ROSUVASTATIN CALCIUM
     Indication: PRODUCT USED FOR UNKNOWN INDICATION
     Route: 065
  12. FISH OIL [Concomitant]
     Active Substance: FISH OIL
  13. VITAMIN B12 [Concomitant]
     Active Substance: CYANOCOBALAMIN
  14. VOLTAREN [Concomitant]
     Active Substance: DICLOFENAC SODIUM
  15. Q10 [Concomitant]
  16. ACTEMRA [Suspect]
     Active Substance: TOCILIZUMAB
     Indication: RHEUMATOID ARTHRITIS
     Dosage: LAST INFUSION ON 05/MAR/2014
     Route: 042
     Dates: start: 20120515
  17. NAPROXEN. [Concomitant]
     Active Substance: NAPROXEN
  18. LYSINE [Concomitant]
     Active Substance: LYSINE
  19. VITAMIN E [Concomitant]
     Active Substance: .ALPHA.-TOCOPHEROL
  20. PREDNISONE. [Concomitant]
     Active Substance: PREDNISONE
  21. HYDROCHLOROTHIAZIDE/TRIAMTERENE [Concomitant]
     Active Substance: HYDROCHLOROTHIAZIDE\TRIAMTERENE
  22. TRAMADOL. [Concomitant]
     Active Substance: TRAMADOL
  23. LORAZEPAM. [Concomitant]
     Active Substance: LORAZEPAM
     Route: 065
  24. AMLODIPINE BESYLATE. [Concomitant]
     Active Substance: AMLODIPINE BESYLATE
  25. LOSARTAN. [Concomitant]
     Active Substance: LOSARTAN
  26. TRIAZIDE (HYDROCHLOROTHIAZIDE\TRIAMTERENE) [Concomitant]
     Active Substance: HYDROCHLOROTHIAZIDE\TRIAMTERENE

REACTIONS (7)
  - Tooth fracture [Unknown]
  - Tooth disorder [Unknown]
  - Fatigue [Unknown]
  - Arthralgia [Unknown]
  - Tooth infection [Unknown]
  - Dental caries [Unknown]
  - Incision site infection [Recovering/Resolving]

NARRATIVE: CASE EVENT DATE: 201609
